FAERS Safety Report 6804450-5 (Version None)
Quarter: 2010Q2

REPORT INFORMATION
  Report Type: 
  Country: None (occurrence: None)
  Receive Date: 20100628
  Receipt Date: 20070321
  Transmission Date: 20101027
  Serious: No
  Sender: FDA-Public Use
  Company Number: US-PFIZER INC-2007024581

PATIENT
  Sex: Female
  Weight: 63.5 kg

DRUGS (8)
  1. XALATAN [Suspect]
     Indication: GLAUCOMA
     Dosage: 1 EVERY NA DAYS0.005%
     Route: 047
     Dates: start: 19970101
  2. ALPHAGAN [Concomitant]
  3. SYNTHROID [Concomitant]
  4. ACETYLSALICYLIC ACID [Concomitant]
  5. METOPROLOL [Concomitant]
  6. VALSARTAN [Concomitant]
  7. INSULIN [Concomitant]
  8. FAMOTIDINE [Concomitant]

REACTIONS (2)
  - HEADACHE [None]
  - OCULAR HYPERAEMIA [None]
